FAERS Safety Report 11132345 (Version 1)
Quarter: 2015Q2

REPORT INFORMATION
  Report Type: Spontaneous
  Country: JP (occurrence: JP)
  Receive Date: 20150522
  Receipt Date: 20150522
  Transmission Date: 20150821
  Serious: Yes (Hospitalization)
  Sender: FDA-Public Use
  Company Number: PHHY2015JP058591

PATIENT
  Age: 14 Year
  Sex: Male

DRUGS (3)
  1. AMPICILLIN [Suspect]
     Active Substance: AMPICILLIN
     Indication: ACUTE FOCAL BACTERIAL NEPHRITIS
     Route: 065
  2. LEVOFLOXACIN. [Concomitant]
     Active Substance: LEVOFLOXACIN
     Indication: ACUTE FOCAL BACTERIAL NEPHRITIS
     Route: 065
  3. LINEZOLID. [Concomitant]
     Active Substance: LINEZOLID
     Indication: ACUTE FOCAL BACTERIAL NEPHRITIS
     Route: 065

REACTIONS (2)
  - Rash [Unknown]
  - Inflammation [Unknown]
